FAERS Safety Report 4887412-7 (Version None)
Quarter: 2006Q1

REPORT INFORMATION
  Report Type: 
  Country: None (occurrence: None)
  Receive Date: 20060118
  Receipt Date: 20051005
  Transmission Date: 20060701
  Serious: Yes (Hospitalization, Other)
  Sender: FDA-Public Use
  Company Number: 802#1#2005-00001

PATIENT
  Age: 52 Year
  Sex: Male

DRUGS (6)
  1. SUGIRAN (ALPROSTADIL (PAOD) ) [Suspect]
     Indication: PERIPHERAL ISCHAEMIA
     Dosage: 20 MCG/12 HOURS, INTRAVENOUS (NOT OTHERWISE SPECIFIED)
     Route: 042
     Dates: start: 20050920, end: 20050923
  2. PIPERACILLINE/TAZOBACTAM (PIPEACILLIN SODIUM, TAZOBACTAM SODIUM) [Concomitant]
  3. ACETAMINOPHEN [Concomitant]
  4. DALTEPARINE (HEPARIN-FRACTION, SODIUM SALT) [Concomitant]
  5. ASPIRIN [Concomitant]
  6. INSULIN [Concomitant]

REACTIONS (4)
  - COAGULATION FACTOR DECREASED [None]
  - LEUKOPENIA [None]
  - PYREXIA [None]
  - THROMBOCYTOPENIA [None]
